FAERS Safety Report 6434923-9 (Version None)
Quarter: 2009Q4

REPORT INFORMATION
  Report Type: 
  Country: None (occurrence: None)
  Receive Date: 20091109
  Receipt Date: 20091109
  Transmission Date: 20100525
  Serious: No
  Sender: FDA-Public Use
  Company Number: None

PATIENT
  Age: 23 Year
  Sex: Male
  Weight: 70.3 kg

DRUGS (1)
  1. CLONAZEPAM [Suspect]
     Indication: ANXIETY
     Dosage: 1 MG TID PO
     Route: 048
     Dates: start: 20090723, end: 20090924

REACTIONS (2)
  - DISINHIBITION [None]
  - SUICIDAL IDEATION [None]
